FAERS Safety Report 8435998-8 (Version None)
Quarter: 2012Q2

REPORT INFORMATION
  Report Type: 
  Country: None (occurrence: None)
  Receive Date: 20120608
  Receipt Date: 20120608
  Transmission Date: 20120825
  Serious: Yes (Other)
  Sender: FDA-Public Use
  Company Number: None

PATIENT
  Age: 39 Year
  Sex: Female
  Weight: 53.0709 kg

DRUGS (1)
  1. CIPROFLOXACIN [Suspect]
     Indication: OVERGROWTH BACTERIAL
     Dosage: 500 MG, 2X/DAY, PO
     Route: 048
     Dates: start: 20120327, end: 20120331

REACTIONS (4)
  - ARTHRALGIA [None]
  - ABASIA [None]
  - CHONDROPATHY [None]
  - JOINT SWELLING [None]
